FAERS Safety Report 16705604 (Version 4)
Quarter: 2019Q4

REPORT INFORMATION
  Report Type: Report from Study
  Country: JP (occurrence: JP)
  Receive Date: 20190815
  Receipt Date: 20191230
  Transmission Date: 20200122
  Serious: Yes (Hospitalization, Other)
  Sender: FDA-Public Use
  Company Number: JP-AMGEN-JPNCT2019129859

PATIENT
  Age: 67 Year
  Sex: Female
  Weight: 45 kg

DRUGS (20)
  1. PANITUMUMAB [Suspect]
     Active Substance: PANITUMUMAB
     Dosage: 270 MILLIGRAM, Q2WK
     Route: 041
     Dates: start: 20190819, end: 20190819
  2. IRINOTECAN [Suspect]
     Active Substance: IRINOTECAN
     Dosage: 180 MILLIGRAM
     Route: 041
     Dates: start: 20190709, end: 20190709
  3. IRINOTECAN [Suspect]
     Active Substance: IRINOTECAN
     Indication: COLON CANCER
     Dosage: 180 MILLIGRAM
     Route: 041
     Dates: start: 20190604, end: 20190618
  4. CALCIUM LEVOFOLINATE [Concomitant]
     Active Substance: LEVOLEUCOVORIN CALCIUM
     Dosage: UNK
     Route: 065
     Dates: start: 20190819, end: 20190819
  5. PANITUMUMAB [Suspect]
     Active Substance: PANITUMUMAB
     Dosage: 280 MILLIGRAM, Q2WK
     Route: 041
     Dates: start: 20190709, end: 20190709
  6. PANITUMUMAB [Suspect]
     Active Substance: PANITUMUMAB
     Dosage: 270 MILLIGRAM, Q2WK
     Route: 041
     Dates: start: 20190924
  7. 5-FU [FLUOROURACIL] [Suspect]
     Active Substance: FLUOROURACIL
     Indication: COLON CANCER
     Dosage: 570 MILLIGRAM
     Route: 040
     Dates: start: 20190604, end: 20190618
  8. IRINOTECAN [Suspect]
     Active Substance: IRINOTECAN
     Dosage: 180 MILLIGRAM
     Route: 041
     Dates: start: 20190924
  9. 5-FU [FLUOROURACIL] [Suspect]
     Active Substance: FLUOROURACIL
     Dosage: 3450 MILLIGRAM
     Route: 040
     Dates: start: 20190819, end: 20190819
  10. 5-FU [FLUOROURACIL] [Suspect]
     Active Substance: FLUOROURACIL
     Dosage: 3450 MILLIGRAM
     Route: 041
     Dates: start: 20190924
  11. CALCIUM LEVOFOLINATE [Concomitant]
     Active Substance: LEVOLEUCOVORIN CALCIUM
     Dosage: UNK
     Route: 065
     Dates: start: 20190709, end: 20190709
  12. INSULIN GLARGINE [Concomitant]
     Active Substance: INSULIN GLARGINE
     Indication: DIABETES MELLITUS
     Dosage: UNK UNK, QD
     Route: 058
  13. IRINOTECAN [Suspect]
     Active Substance: IRINOTECAN
     Dosage: 180 MILLIGRAM
     Route: 041
     Dates: start: 20190819, end: 20190819
  14. 5-FU [FLUOROURACIL] [Suspect]
     Active Substance: FLUOROURACIL
     Dosage: 3450 MILLIGRAM
     Route: 041
     Dates: start: 20190604, end: 20190618
  15. 5-FU [FLUOROURACIL] [Suspect]
     Active Substance: FLUOROURACIL
     Dosage: 3450 MILLIGRAM
     Route: 041
     Dates: start: 20190709, end: 20190709
  16. CALCIUM LEVOFOLINATE [Concomitant]
     Active Substance: LEVOLEUCOVORIN CALCIUM
     Indication: COLON CANCER
     Dosage: UNK
     Route: 065
     Dates: end: 20190618
  17. CALCIUM LEVOFOLINATE [Concomitant]
     Active Substance: LEVOLEUCOVORIN CALCIUM
     Dosage: UNK
     Route: 065
     Dates: start: 20190924
  18. PANITUMUMAB [Suspect]
     Active Substance: PANITUMUMAB
     Indication: COLON CANCER
     Dosage: 280 MILLIGRAM, Q2WK
     Route: 041
     Dates: start: 20190604, end: 20190618
  19. 5-FU [FLUOROURACIL] [Suspect]
     Active Substance: FLUOROURACIL
     Dosage: 570 MILLIGRAM
     Route: 040
     Dates: start: 20190709, end: 20190709
  20. NOVORAPID [Concomitant]
     Active Substance: INSULIN ASPART
     Indication: DIABETES MELLITUS
     Dosage: UNK UNK, TID
     Route: 058

REACTIONS (7)
  - Erythema [Unknown]
  - Dyspnoea [Unknown]
  - Oropharyngeal discomfort [Unknown]
  - Neutrophil count decreased [Unknown]
  - Cholangitis [Recovered/Resolved]
  - Diarrhoea [Recovering/Resolving]
  - Pruritus [Unknown]

NARRATIVE: CASE EVENT DATE: 20190604
